FAERS Safety Report 12522996 (Version 1)
Quarter: 2016Q3

REPORT INFORMATION
  Report Type: Not Available
  Country: ES (occurrence: ES)
  Receive Date: 20160701
  Receipt Date: 20160701
  Transmission Date: 20161109
  Serious: Yes (Hospitalization)
  Sender: FDA-Public Use
  Company Number: ES-ANIPHARMA-2016-ES-000009

PATIENT
  Age: 49 Year
  Sex: Male

DRUGS (1)
  1. IBUPROFEN (NON-SPECIFIC) [Suspect]
     Active Substance: IBUPROFEN
     Dosage: 10 G DAILY
     Route: 048

REACTIONS (3)
  - Acute kidney injury [Recovered/Resolved]
  - Pulmonary alveolar haemorrhage [Recovered/Resolved]
  - Intentional overdose [Recovered/Resolved]
